FAERS Safety Report 4538093-3 (Version None)
Quarter: 2004Q4

REPORT INFORMATION
  Report Type: 
  Country: None (occurrence: None)
  Receive Date: 20041221
  Receipt Date: 20041208
  Transmission Date: 20050328
  Serious: Yes (Other)
  Sender: FDA-Public Use
  Company Number: 2004049949

PATIENT
  Age: 63 Year
  Sex: Female

DRUGS (5)
  1. LIPITOR [Suspect]
     Indication: HYPERLIPIDAEMIA
     Dosage: 10 MG (10 MG, 1 IN 1 D), ORAL
     Route: 048
     Dates: start: 20040301, end: 20040401
  2. BENPROPERINE PHOSPHATE (BENPROPERINE PHOSPHATE) [Concomitant]
  3. TULOBUTEROL HYDROCHLORIDE (TULOBUTEROL HYDROCHLORIDE) [Concomitant]
  4. THEOPHYLLINE [Concomitant]
  5. BEPOTASTINE BESILATE (BEPOTASTINE BESILATE) [Concomitant]

REACTIONS (1)
  - RHABDOMYOLYSIS [None]
